FAERS Safety Report 7306571-X (Version None)
Quarter: 2011Q1

REPORT INFORMATION
  Report Type: 
  Country: None (occurrence: None)
  Receive Date: 20110119
  Receipt Date: 20101015
  Transmission Date: 20110831
  Serious: Yes (Hospitalization)
  Sender: FDA-Public Use
  Company Number: A-US2010-40786

PATIENT
  Age: 35 Year
  Sex: Female

DRUGS (4)
  1. COUMADIN [Concomitant]
  2. TADALAFIL [Concomitant]
  3. CALCIUM CHANNEL BLOCKERS [Concomitant]
  4. TRACLEER [Suspect]
     Indication: PULMONARY ARTERIAL HYPERTENSION
     Dosage: ORAL
     Route: 048
     Dates: start: 20100125, end: 20101001

REACTIONS (1)
  - PULMONARY ARTERIAL HYPERTENSION [None]
